FAERS Safety Report 18063945 (Version 6)
Quarter: 2020Q3

REPORT INFORMATION
  Report Type: Spontaneous
  Country: US (occurrence: US)
  Receive Date: 20200724
  Receipt Date: 20200817
  Transmission Date: 20201103
  Serious: No
  Sender: FDA-Public Use
  Company Number: US-AMGEN-USASP2020116938

PATIENT
  Age: 76 Year
  Sex: Male

DRUGS (2)
  1. NEULASTA [Suspect]
     Active Substance: PEGFILGRASTIM
     Indication: LYMPHOMA
     Dosage: 6 MILLIGRAM, Q2WK (EVERY 14 DAYS)
     Route: 058
  2. NEULASTA [Suspect]
     Active Substance: PEGFILGRASTIM
     Dosage: 6 MILLIGRAM, Q2WK (EVERY 14 DAYS)
     Route: 058

REACTIONS (2)
  - Device adhesion issue [Unknown]
  - Off label use [Unknown]

NARRATIVE: CASE EVENT DATE: 20200713
